FAERS Safety Report 20664002 (Version 2)
Quarter: 2022Q2

REPORT INFORMATION
  Report Type: Report from Study
  Country: AR (occurrence: AR)
  Receive Date: 20220401
  Receipt Date: 20220412
  Transmission Date: 20220720
  Serious: Yes (Hospitalization, Other)
  Sender: FDA-Public Use
  Company Number: AR-Merck Healthcare KGaA-9310039

PATIENT
  Age: 63 Year
  Sex: Male

DRUGS (1)
  1. CETUXIMAB [Suspect]
     Active Substance: CETUXIMAB
     Indication: Product used for unknown indication
     Dosage: UNK UNK, UNKNOWN
     Route: 065
     Dates: start: 20220125

REACTIONS (6)
  - Feeling abnormal [Not Recovered/Not Resolved]
  - Superficial vein thrombosis [Recovered/Resolved]
  - Pain [Recovered/Resolved]
  - Weight decreased [Recovered/Resolved]
  - Asthenia [Recovered/Resolved]
  - Malaise [Recovered/Resolved]

NARRATIVE: CASE EVENT DATE: 20220201
